FAERS Safety Report 23152294 (Version 2)
Quarter: 2024Q1

REPORT INFORMATION
  Report Type: Spontaneous
  Country: US (occurrence: None)
  Receive Date: 20231107
  Receipt Date: 20240102
  Transmission Date: 20240409
  Serious: No
  Sender: FDA-Public Use
  Company Number: 2023A248896

PATIENT

DRUGS (1)
  1. BYDUREON BCISE [Suspect]
     Active Substance: EXENATIDE
     Dosage: 2.0MG UNKNOWN

REACTIONS (11)
  - Injection site mass [Unknown]
  - Nervousness [Unknown]
  - Device use issue [Unknown]
  - Exposure to contaminated device [Unknown]
  - Poor quality device used [Unknown]
  - Device malfunction [Unknown]
  - Device issue [Unknown]
  - Device physical property issue [Unknown]
  - Drug dose omission by device [Unknown]
  - Device delivery system issue [Unknown]
  - Product contamination [Unknown]
